FAERS Safety Report 4926005-X (Version None)
Quarter: 2006Q1

REPORT INFORMATION
  Report Type: 
  Country: None (occurrence: None)
  Receive Date: 20060228
  Receipt Date: 20050725
  Transmission Date: 20060701
  Serious: Yes (Other)
  Sender: FDA-Public Use
  Company Number: US-GLAXOSMITHKLINE-A0567570A

PATIENT
  Age: 47 Year
  Sex: Female

DRUGS (6)
  1. LAMICTAL [Suspect]
     Route: 048
     Dates: start: 20040519
  2. DETROL LA [Suspect]
  3. POTASSIUM [Concomitant]
  4. NITROFURANTOIN [Concomitant]
  5. STOOL SOFTENER [Concomitant]
  6. DILANTIN [Concomitant]

REACTIONS (2)
  - AGGRESSION [None]
  - URINARY RETENTION [None]
